FAERS Safety Report 8273329-7 (Version None)
Quarter: 2012Q2

REPORT INFORMATION
  Report Type: 
  Country: None (occurrence: None)
  Receive Date: 20120411
  Receipt Date: 20120404
  Transmission Date: 20120825
  Serious: Yes (Other)
  Sender: FDA-Public Use
  Company Number: PHHY2012NL029536

PATIENT
  Sex: Male

DRUGS (3)
  1. ZOMETA [Suspect]
     Dosage: 4MG/100ML , ONCE PER 28 DAYS
     Dates: start: 20120228
  2. ZOMETA [Suspect]
     Dosage: 4MG/100ML , ONCE PER 28 DAYS
     Dates: start: 20110310
  3. ZOMETA [Suspect]
     Indication: PROSTATE CANCER METASTATIC
     Dosage: 4MG/100ML , ONCE PER 28 DAYS

REACTIONS (3)
  - MALAISE [None]
  - TERMINAL STATE [None]
  - FATIGUE [None]
